FAERS Safety Report 20574931 (Version 1)
Quarter: 2022Q1

REPORT INFORMATION
  Report Type: Spontaneous
  Country: DE (occurrence: DE)
  Receive Date: 20220310
  Receipt Date: 20220310
  Transmission Date: 20220423
  Serious: Yes (Congenital Anomaly, Other)
  Sender: FDA-Public Use
  Company Number: None

PATIENT
  Age: 3 Week
  Sex: Male
  Weight: 3.8 kg

DRUGS (4)
  1. VENLAFAXINE [Suspect]
     Active Substance: VENLAFAXINE HYDROCHLORIDE
     Indication: Depression
     Dosage: 225 [MG/D (BIS 150) ]
     Route: 064
     Dates: start: 20201118
  2. VENLAFAXINE [Suspect]
     Active Substance: VENLAFAXINE HYDROCHLORIDE
     Indication: Depression
     Dosage: DOSAGE WAS REDUCED TO 150 MG/D AT GW 32 3/7
     Route: 064
     Dates: end: 20210811
  3. L-Thyrox HEXAL 100 [Concomitant]
     Indication: Hypothyroidism
     Dosage: 100 [+#181;G/D ]
     Route: 064
     Dates: start: 20201118, end: 20210811
  4. MISOPROSTOL [Concomitant]
     Active Substance: MISOPROSTOL
     Indication: Labour induction
     Route: 064

REACTIONS (4)
  - Congenital megaureter [Unknown]
  - Foetal exposure during pregnancy [Unknown]
  - Poor weight gain neonatal [Recovered/Resolved]
  - Pyelonephritis [Recovered/Resolved]
